FAERS Safety Report 9692931 (Version 1)
Quarter: 2013Q4

REPORT INFORMATION
  Report Type: Spontaneous
  Country: US (occurrence: US)
  Receive Date: 20131118
  Receipt Date: 20131118
  Transmission Date: 20140711
  Serious: No
  Sender: FDA-Public Use
  Company Number: US-GLAXOSMITHKLINE-A1013441A

PATIENT
  Age: 64 Year
  Sex: Male

DRUGS (7)
  1. COREG CR [Suspect]
     Indication: PRODUCT USED FOR UNKNOWN INDICATION
     Route: 048
     Dates: start: 201205
  2. CLOPIDOGREL [Concomitant]
  3. LOSARTAN POTASSIUM [Concomitant]
  4. FISH OIL [Concomitant]
  5. CRESTOR [Concomitant]
  6. ASPIRIN [Concomitant]
  7. NIACIN [Concomitant]

REACTIONS (1)
  - Heart rate decreased [Not Recovered/Not Resolved]
